FAERS Safety Report 11437133 (Version 1)
Quarter: 2015Q3

REPORT INFORMATION
  Report Type: Spontaneous
  Country: US (occurrence: US)
  Receive Date: 20150821
  Receipt Date: 20150821
  Transmission Date: 20151125
  Serious: No
  Sender: FDA-Public Use
  Company Number: US-ELI_LILLY_AND_COMPANY-US200703001581

PATIENT
  Age: 63 Year
  Sex: Male

DRUGS (4)
  1. CYMBALTA [Suspect]
     Active Substance: DULOXETINE HYDROCHLORIDE
     Indication: MAJOR DEPRESSION
     Dosage: 60 MG, UNK
  2. LUNESTA [Concomitant]
     Active Substance: ESZOPICLONE
     Dosage: UNK, EACH EVENING
  3. SEROQUEL [Concomitant]
     Active Substance: QUETIAPINE FUMARATE
     Dosage: UNK, EACH EVENING
  4. CYMBALTA [Suspect]
     Active Substance: DULOXETINE HYDROCHLORIDE
     Dosage: 30 MG, UNK

REACTIONS (2)
  - Fall [Recovered/Resolved]
  - Orthostatic hypotension [Recovered/Resolved]
